FAERS Safety Report 18689538 (Version 3)
Quarter: 2022Q4

REPORT INFORMATION
  Report Type: Spontaneous
  Country: DE (occurrence: DE)
  Receive Date: 20201231
  Receipt Date: 20221030
  Transmission Date: 20230113
  Serious: Yes (Hospitalization)
  Sender: FDA-Public Use
  Company Number: DE-ADRED-06057-01

PATIENT
  Age: 98 Year
  Sex: Female
  Weight: 64 kg

DRUGS (6)
  1. ASPIRIN [Suspect]
     Active Substance: ASPIRIN
     Indication: Product used for unknown indication
     Dosage: 100 MILLIGRAM DAILY; 1-0-0-0
  2. LACTULOSE [Suspect]
     Active Substance: LACTULOSE
     Indication: Product used for unknown indication
     Dosage: JUICE
     Route: 065
  3. CANDESARTAN CILEXETIL\HYDROCHLOROTHIAZIDE [Concomitant]
     Active Substance: CANDESARTAN CILEXETIL\HYDROCHLOROTHIAZIDE
     Indication: Product used for unknown indication
     Dosage: 1 DOSAGE FORMS DAILY; 16|12.5 MG, 1-0-0-0
     Route: 048
  4. SIMVASTATIN [Concomitant]
     Active Substance: SIMVASTATIN
     Indication: Product used for unknown indication
     Dosage: .5 DOSAGE FORMS DAILY; 20 MG, 0-0-0.5-0
     Route: 048
  5. Tavu 50Mikrogramm Latanoprost + 5mg Timolol pro 1ml [Concomitant]
     Indication: Product used for unknown indication
     Dosage: 1 GTT DAILY; 1-0-0-0, DROPS
     Route: 047
  6. Trospium Aristo 30mg [Concomitant]
     Indication: Product used for unknown indication
     Dosage: 60 MILLIGRAM DAILY; 1-0-1-0
     Route: 048

REACTIONS (4)
  - Diarrhoea haemorrhagic [Unknown]
  - Haematochezia [Unknown]
  - Diverticulum intestinal haemorrhagic [Unknown]
  - Constipation [Unknown]
